FAERS Safety Report 23980100 (Version 1)
Quarter: 2024Q2

REPORT INFORMATION
  Report Type: Spontaneous
  Country: US (occurrence: US)
  Receive Date: 20240617
  Receipt Date: 20240617
  Transmission Date: 20240715
  Serious: No
  Sender: FDA-Public Use
  Company Number: US-STRIDES ARCOLAB LIMITED-2024SP000474

PATIENT
  Age: 41 Year
  Sex: Female

DRUGS (2)
  1. DEXTROAMPHETAMINE SULFATE [Suspect]
     Active Substance: DEXTROAMPHETAMINE SULFATE
     Indication: Migraine
     Dosage: EXTENDED RELEASE
     Route: 065
  2. DEXTROAMPHETAMINE SULFATE [Suspect]
     Active Substance: DEXTROAMPHETAMINE SULFATE
     Indication: Temporomandibular pain and dysfunction syndrome
     Dosage: EXTENDED RELEASE
     Route: 065

REACTIONS (1)
  - Off label use [Unknown]
